FAERS Safety Report 20148621 (Version 1)
Quarter: 2021Q4

REPORT INFORMATION
  Report Type: Spontaneous
  Country: DE (occurrence: DE)
  Receive Date: 20211204
  Receipt Date: 20211204
  Transmission Date: 20220303
  Serious: Yes (Disabling)
  Sender: FDA-Public Use
  Company Number: None

PATIENT
  Age: 97 Year
  Sex: Female

DRUGS (1)
  1. BEOVU [Suspect]
     Active Substance: BROLUCIZUMAB-DBLL
     Indication: Choroidal neovascularisation
     Dosage: 6 MG
     Route: 065
     Dates: start: 20210121

REACTIONS (3)
  - Ocular ischaemic syndrome [Unknown]
  - Blindness [Unknown]
  - Retinal occlusive vasculitis [Unknown]
